FAERS Safety Report 24543817 (Version 1)
Quarter: 2024Q4

REPORT INFORMATION
  Report Type: Spontaneous
  Country: ES (occurrence: ES)
  Receive Date: 20241024
  Receipt Date: 20241024
  Transmission Date: 20250115
  Serious: Yes (Other)
  Sender: AUROBINDO
  Company Number: ES-AEMPS-1577092

PATIENT
  Age: 73 Year
  Sex: Female

DRUGS (3)
  1. ATORVASTATIN [Suspect]
     Active Substance: ATORVASTATIN
     Indication: Hypercholesterolaemia
     Dosage: 20 MILLIGRAM, ONCE A DAY (20MG/24H)
     Route: 048
     Dates: start: 20220822, end: 20230425
  2. AMOXICILLIN [Suspect]
     Active Substance: AMOXICILLIN
     Indication: Infection
     Dosage: 500 MILLIGRAM, 3 TIMES A DAY (500MG/8H)
     Route: 048
     Dates: start: 20230224, end: 20230228
  3. BACLOFEN [Concomitant]
     Active Substance: BACLOFEN
     Indication: Essential tremor
     Dosage: 10 MILLIGRAM, ONCE A DAY (10MG/24H)
     Route: 048
     Dates: start: 20230124

REACTIONS (1)
  - Hepatitis cholestatic [Recovered/Resolved]

NARRATIVE: CASE EVENT DATE: 20230228
